FAERS Safety Report 4488345-0 (Version None)
Quarter: 2004Q4

REPORT INFORMATION
  Report Type: 
  Country: None (occurrence: None)
  Receive Date: 20041026
  Receipt Date: 20041013
  Transmission Date: 20050328
  Serious: Yes (Hospitalization)
  Sender: FDA-Public Use
  Company Number: 200420832BWH

PATIENT
  Age: 80 Year
  Sex: Female

DRUGS (9)
  1. AVELOX [Suspect]
     Indication: LOCALISED INFECTION
     Dosage: 400 MG, TOTAL DAILY, ORAL
     Route: 048
     Dates: start: 20041006, end: 20041011
  2. UNASYN [Concomitant]
  3. COUMADIN [Concomitant]
  4. MULTI-VITAMIN [Concomitant]
  5. SYNTHROID [Concomitant]
  6. ATENOLOL [Concomitant]
  7. METAMUCIL-2 [Concomitant]
  8. XALATAN [Concomitant]
  9. LASIX [Concomitant]

REACTIONS (5)
  - ADVERSE DRUG REACTION [None]
  - CHEST PAIN [None]
  - CHOLELITHIASIS [None]
  - DIARRHOEA [None]
  - PANCREATITIS [None]
